FAERS Safety Report 8888519 (Version 3)
Quarter: 2013Q3

REPORT INFORMATION
  Report Type: Spontaneous
  Country: US (occurrence: US)
  Receive Date: 20121106
  Receipt Date: 20130731
  Transmission Date: 20140515
  Serious: Yes (Hospitalization, Other)
  Sender: FDA-Public Use
  Company Number: US-UCBSA-070199

PATIENT
  Age: 29 Year
  Sex: Female
  Weight: 77 kg

DRUGS (7)
  1. CIMZIA [Suspect]
     Indication: CROHN^S DISEASE
     Dates: start: 20090703
  2. PRENATAL VITAMINS [Concomitant]
     Indication: PREGNANCY
     Dosage: QHS- 1 TABLET
  3. SEROQUEL [Concomitant]
     Indication: SCHIZOAFFECTIVE DISORDER BIPOLAR TYPE
     Dosage: 150 MG QHS
     Route: 048
  4. LORATADINE [Concomitant]
     Indication: HYPERSENSITIVITY
     Dosage: 10 MG QD
     Route: 048
     Dates: start: 200803
  5. CELEXA [Concomitant]
     Indication: SCHIZOAFFECTIVE DISORDER BIPOLAR TYPE
     Route: 048
     Dates: start: 19871009
  6. ABILIFY [Concomitant]
     Indication: SCHIZOAFFECTIVE DISORDER BIPOLAR TYPE
     Dosage: QHS
     Route: 048
     Dates: start: 20090707
  7. MERCAPTOPURINE [Concomitant]
     Indication: CROHN^S DISEASE
     Route: 048

REACTIONS (3)
  - Mental disorder [Recovering/Resolving]
  - Suicidal ideation [Unknown]
  - Treatment noncompliance [Unknown]
